FAERS Safety Report 14476471 (Version 2)
Quarter: 2018Q2

REPORT INFORMATION
  Report Type: Spontaneous
  Country: US (occurrence: US)
  Receive Date: 20180201
  Receipt Date: 20180430
  Transmission Date: 20180711
  Serious: No
  Sender: FDA-Public Use
  Company Number: US-SA-2018SA007385

PATIENT
  Age: 59 Year
  Sex: Female
  Weight: 67 kg

DRUGS (17)
  1. METHOTREXATE. [Concomitant]
     Active Substance: METHOTREXATE
     Route: 065
  2. ALIROCUMAB PREFILLED PEN [Suspect]
     Active Substance: ALIROCUMAB
     Indication: HYPERLIPIDAEMIA
     Dates: start: 201709
  3. FLUTICASONE. [Concomitant]
     Active Substance: FLUTICASONE
     Route: 065
  4. MICARDIS [Concomitant]
     Active Substance: TELMISARTAN
     Route: 065
  5. DIGOX [Concomitant]
     Active Substance: DIGOXIN
     Route: 065
  6. PERCOCET [Concomitant]
     Active Substance: ACETAMINOPHEN\OXYCODONE HYDROCHLORIDE
     Route: 065
  7. PRILOSEC [Concomitant]
     Active Substance: OMEPRAZOLE MAGNESIUM
     Route: 065
  8. PRALUENT [Suspect]
     Active Substance: ALIROCUMAB
     Indication: HYPERLIPIDAEMIA
     Route: 058
     Dates: start: 201709
  9. PRALUENT [Suspect]
     Active Substance: ALIROCUMAB
     Indication: HYPERLIPIDAEMIA
     Route: 058
     Dates: start: 201709
  10. ATENOLOL. [Concomitant]
     Active Substance: ATENOLOL
     Route: 065
  11. PATANASE [Concomitant]
     Active Substance: OLOPATADINE HYDROCHLORIDE
     Route: 065
  12. VITAMIN D3 [Concomitant]
     Active Substance: CHOLECALCIFEROL
     Route: 065
  13. ALIROCUMAB PREFILLED PEN [Suspect]
     Active Substance: ALIROCUMAB
     Indication: HYPERLIPIDAEMIA
     Dates: start: 201709
  14. CYCLOBENZAPRINE. [Concomitant]
     Active Substance: CYCLOBENZAPRINE
     Route: 065
  15. PREDNISONE. [Concomitant]
     Active Substance: PREDNISONE
     Route: 065
  16. PROMETHAZINE [Concomitant]
     Active Substance: PROMETHAZINE\PROMETHAZINE HYDROCHLORIDE
     Route: 065
  17. SKELAXIN [Concomitant]
     Active Substance: METAXALONE
     Route: 065

REACTIONS (3)
  - Muscle spasms [Unknown]
  - Injection site reaction [Unknown]
  - Device issue [Unknown]

NARRATIVE: CASE EVENT DATE: 201803
